FAERS Safety Report 6617807-2 (Version None)
Quarter: 2010Q1

REPORT INFORMATION
  Report Type: 
  Country: None (occurrence: None)
  Receive Date: 20100308
  Receipt Date: 20100303
  Transmission Date: 20100710
  Serious: Yes (Death, Hospitalization, Other)
  Sender: FDA-Public Use
  Company Number: US-ROXANE LABORATORIES, INC.-2010-RO-00227RO

PATIENT
  Age: 54 Year
  Sex: Male

DRUGS (5)
  1. MYCOPHENOLATE MOFETIL [Suspect]
  2. EPOGEN [Suspect]
     Indication: ANAEMIA
  3. PEGLATED INTERFERON-ALPHA 2A [Suspect]
     Indication: ANAEMIA
  4. TACROLIMUS [Suspect]
  5. NEUPOGEN [Suspect]

REACTIONS (8)
  - ASCITES [None]
  - ASTHENIA [None]
  - HEPATIC FIBROSIS [None]
  - HEPATITIS C [None]
  - MYELODYSPLASTIC SYNDROME [None]
  - PYREXIA [None]
  - SEPTIC SHOCK [None]
  - SKIN INFECTION [None]
